FAERS Safety Report 8568145 (Version 4)
Quarter: 2013Q1

REPORT INFORMATION
  Report Type: Spontaneous
  Country: US (occurrence: US)
  Receive Date: 20120518
  Receipt Date: 20130214
  Transmission Date: 20140127
  Serious: Yes (Hospitalization, Other)
  Sender: FDA-Public Use
  Company Number: US-BAYER-2012-047963

PATIENT
  Age: 20 Year
  Sex: Female
  Weight: 70 kg

DRUGS (10)
  1. YAZ [Suspect]
     Indication: ACNE
     Dosage: UNK
     Dates: start: 200509, end: 200809
  2. YASMIN [Suspect]
     Indication: ACNE
     Dosage: UNK
     Dates: start: 200509, end: 200509
  3. YASMIN [Suspect]
     Indication: ACNE
     Dosage: UNK
     Dates: start: 200509, end: 200809
  4. YASMIN [Suspect]
     Indication: ACNE
     Dosage: UNK
     Dates: start: 200701, end: 200702
  5. MOTRIN [Concomitant]
  6. ADVIL [Concomitant]
  7. TYLENOL [Concomitant]
  8. BUTALBITAL [Concomitant]
  9. FLUVOXAMINE [Concomitant]
  10. ORTHO TRI CYCLEN [Concomitant]
     Dosage: UNK
     Dates: start: 2009

REACTIONS (14)
  - Cholecystectomy [None]
  - Cholecystitis chronic [None]
  - Osteonecrosis [None]
  - Arteriovenous fistula thrombosis [Recovered/Resolved]
  - Migraine [None]
  - Pain [None]
  - Injury [None]
  - Femoroacetabular impingement [None]
  - Cartilage injury [None]
  - Emotional distress [None]
  - Anhedonia [None]
  - Psychological trauma [None]
  - Anxiety [None]
  - Fear of disease [None]
